FAERS Safety Report 20546384 (Version 2)
Quarter: 2022Q1

REPORT INFORMATION
  Report Type: Spontaneous
  Country: US (occurrence: US)
  Receive Date: 20220303
  Receipt Date: 20220309
  Transmission Date: 20220423
  Serious: Yes (Other)
  Sender: FDA-Public Use
  Company Number: US-PFIZER INC-202200320749

PATIENT
  Age: 16 Year
  Sex: Female

DRUGS (2)
  1. TESTOSTERONE [Suspect]
     Active Substance: TESTOSTERONE
     Indication: Hormone therapy
     Dosage: 0.125 MG, WEEKLY
     Route: 058
  2. TESTOSTERONE [Suspect]
     Active Substance: TESTOSTERONE
     Dosage: UNK (DOSE INCREASED)

REACTIONS (3)
  - Acne fulminans [Recovered/Resolved]
  - Acne [Recovered/Resolved]
  - Off label use [Unknown]
